FAERS Safety Report 23092395 (Version 2)
Quarter: 2023Q4

REPORT INFORMATION
  Report Type: Report from Study
  Country: US (occurrence: US)
  Receive Date: 20231021
  Receipt Date: 20231023
  Transmission Date: 20240109
  Serious: No
  Sender: FDA-Public Use
  Company Number: US-002147023-NVSC2023US226647

PATIENT
  Sex: Female

DRUGS (1)
  1. ILARIS [Suspect]
     Active Substance: CANAKINUMAB
     Indication: Autoinflammatory disease
     Dosage: 150 MG, EVERY 8 WEEKS
     Route: 058
     Dates: start: 20191118

REACTIONS (1)
  - Inappropriate schedule of product administration [Unknown]
